FAERS Safety Report 10193915 (Version 1)
Quarter: 2014Q2

REPORT INFORMATION
  Report Type: Spontaneous
  Country: US (occurrence: US)
  Receive Date: 20140524
  Receipt Date: 20140524
  Transmission Date: 20141212
  Serious: No
  Sender: FDA-Public Use
  Company Number: US-SANOFI-AVENTIS-2013SA050124

PATIENT
  Sex: Female

DRUGS (3)
  1. LANTUS [Suspect]
     Indication: TYPE 2 DIABETES MELLITUS
     Route: 058
  2. METFORMIN [Concomitant]
     Dosage: TAKEN FROM: 3 TO LESS THAN 7 YEARS.
     Route: 048
  3. NOVOLOG [Concomitant]
     Dosage: 5 UNITS AT DINNER HOUR AND 35 UNITS AT BED TIME

REACTIONS (1)
  - Glycosylated haemoglobin increased [Unknown]
